FAERS Safety Report 13978677 (Version 4)
Quarter: 2017Q4

REPORT INFORMATION
  Report Type: Spontaneous
  Country: CA (occurrence: CA)
  Receive Date: 20170915
  Receipt Date: 20171013
  Transmission Date: 20180321
  Serious: Yes (Hospitalization, Other)
  Sender: FDA-Public Use
  Company Number: CA-MYLANLABS-2017M1056167

PATIENT
  Age: 24 Year
  Sex: Male
  Weight: 75 kg

DRUGS (4)
  1. NABILONE [Suspect]
     Active Substance: NABILONE
     Dosage: 0.5 MG, BID
     Route: 048
     Dates: start: 201612
  2. NABILONE [Suspect]
     Active Substance: NABILONE
     Indication: CROHN^S DISEASE
     Dosage: 0.5 MG, QD
     Route: 048
     Dates: start: 201510
  3. NABILONE [Suspect]
     Active Substance: NABILONE
     Dosage: 0.5 MG, QD
     Route: 048
     Dates: start: 20170103
  4. NABILONE [Suspect]
     Active Substance: NABILONE
     Dosage: 0.25 MG, QD
     Route: 048
     Dates: start: 20170603, end: 20170717

REACTIONS (3)
  - Neuropsychiatric symptoms [Recovering/Resolving]
  - Suicidal ideation [Unknown]
  - Off label use [Recovered/Resolved]

NARRATIVE: CASE EVENT DATE: 201510
